FAERS Safety Report 7087967-0 (Version None)
Quarter: 2010Q4

REPORT INFORMATION
  Report Type: 
  Country: None (occurrence: None)
  Receive Date: 20101108
  Receipt Date: 20101101
  Transmission Date: 20110411
  Serious: Yes (Death, Other)
  Sender: FDA-Public Use
  Company Number: JP-JNJFOC-20101005862

PATIENT
  Age: 96 Year
  Sex: Male

DRUGS (3)
  1. DUROTEP MT [Suspect]
     Indication: CANCER PAIN
     Route: 062
  2. MAGMITT [Concomitant]
     Route: 048
  3. ACTOS [Concomitant]
     Route: 048

REACTIONS (3)
  - DELIRIUM [None]
  - DEMENTIA [None]
  - DISEASE PROGRESSION [None]
